FAERS Safety Report 9342538 (Version 2)
Quarter: 2013Q3

REPORT INFORMATION
  Report Type: Spontaneous
  Country: NO (occurrence: NO)
  Receive Date: 20130611
  Receipt Date: 20130729
  Transmission Date: 20140515
  Serious: Yes (Life-Threatening, Hospitalization)
  Sender: FDA-Public Use
  Company Number: NO-ELI_LILLY_AND_COMPANY-NO201306000273

PATIENT
  Age: 56 Year
  Sex: Male

DRUGS (2)
  1. ZYPADHERA [Suspect]
     Indication: SCHIZOPHRENIA, PARANOID TYPE
     Dosage: 405 MG, Q3WEEKS
     Route: 030
     Dates: start: 201303, end: 20130521
  2. ABILIFY [Concomitant]
     Indication: SCHIZOPHRENIA, PARANOID TYPE
     Dosage: 15 MG, QD

REACTIONS (8)
  - Obstructive airways disorder [Recovering/Resolving]
  - Coma [Recovering/Resolving]
  - Pneumonia aspiration [Recovering/Resolving]
  - Drooling [Recovering/Resolving]
  - Tachycardia [Recovering/Resolving]
  - Dizziness [Recovering/Resolving]
  - Somnolence [Recovering/Resolving]
  - Inappropriate schedule of drug administration [Recovering/Resolving]
